FAERS Safety Report 7428562-0 (Version None)
Quarter: 2011Q2

REPORT INFORMATION
  Report Type: 
  Country: None (occurrence: None)
  Receive Date: 20110421
  Receipt Date: 20080312
  Transmission Date: 20111010
  Serious: Yes (Other)
  Sender: FDA-Public Use
  Company Number: US-BAYER-200817214NA

PATIENT
  Age: 54 Year
  Sex: Male
  Weight: 140.59 kg

DRUGS (12)
  1. TRICOR [Concomitant]
     Dosage: 160 MG, QD
     Route: 048
  2. INSULIN [Concomitant]
     Dosage: UNK
     Dates: start: 20030825, end: 20030825
  3. PRAVACHOL [Concomitant]
     Dosage: 20 MG, AT BETD TIME
  4. AVANDIA [Concomitant]
     Dosage: 8 MG, QD
     Route: 048
  5. ISOSORBIDE DINITRATE [Concomitant]
     Dosage: 15 MG, QD
     Route: 048
  6. ASPIRIN [Concomitant]
     Dosage: 325 MG, UNK
     Route: 048
     Dates: start: 20030822
  7. METFORMIN [Concomitant]
     Dosage: 850 MG, BID
     Route: 048
  8. EPINEPHRINE [Concomitant]
     Dosage: UNK
     Dates: start: 20030825, end: 20030825
  9. TRASYLOL [Suspect]
     Indication: CORONARY ARTERY BYPASS
     Dosage: 200 ML PRIME VIA CARDIOPULMONARY BYPASS
     Dates: start: 20030825, end: 20030825
  10. VIOXX [Concomitant]
     Dosage: 50 MG, PRN
     Route: 048
     Dates: start: 19960101
  11. TOPROL-XL [Concomitant]
     Dosage: 25 MG, QD
     Route: 048
  12. NITROGLYCERIN [Concomitant]
     Dosage: UNK
     Dates: start: 20030825, end: 20030825

REACTIONS (12)
  - RENAL FAILURE [None]
  - PAIN [None]
  - MYOCARDIAL INFARCTION [None]
  - EMOTIONAL DISTRESS [None]
  - FEAR [None]
  - UNEVALUABLE EVENT [None]
  - ANHEDONIA [None]
  - RENAL FAILURE CHRONIC [None]
  - CARDIAC DISORDER [None]
  - INJURY [None]
  - ANXIETY [None]
  - DEPRESSION [None]
